FAERS Safety Report 6325589-7 (Version None)
Quarter: 2009Q3

REPORT INFORMATION
  Report Type: 
  Country: None (occurrence: None)
  Receive Date: 20090820
  Receipt Date: 20090810
  Transmission Date: 20100115
  Serious: Yes (Hospitalization)
  Sender: FDA-Public Use
  Company Number: 2009-02145

PATIENT
  Age: 60 Year
  Sex: Female

DRUGS (6)
  1. VELCADE [Suspect]
     Indication: DRUG USE FOR UNKNOWN INDICATION
     Dosage: 3.5 MG, INTRAVENOUS
     Route: 042
     Dates: start: 20090513, end: 20090517
  2. OXYCONTIN [Concomitant]
  3. POTASSIUM (POTASSIUM) [Concomitant]
  4. SELEXID (PIVMECILLINAM  HYDROCHLORIDE) [Concomitant]
  5. SODIUM CHLORIDE BAXTER (SODIUM CHLORIDE) [Concomitant]
  6. ACYCLOVIR [Concomitant]

REACTIONS (2)
  - CONVULSION [None]
  - HYPOCALCAEMIA [None]
